FAERS Safety Report 9927406 (Version 2)
Quarter: 2014Q2

REPORT INFORMATION
  Report Type: Report from Study
  Country: CA (occurrence: CA)
  Receive Date: 20140226
  Receipt Date: 20140415
  Transmission Date: 20141212
  Serious: Yes (Other)
  Sender: FDA-Public Use
  Company Number: PHHY2014CA023176

PATIENT
  Sex: Female

DRUGS (4)
  1. ACLASTA [Suspect]
     Indication: OSTEOPOROSIS
     Dosage: UNK
     Route: 042
     Dates: start: 20100127
  2. ACLASTA [Suspect]
     Dosage: UNK
     Route: 042
     Dates: start: 20110126
  3. ACLASTA [Suspect]
     Dosage: UNK
     Route: 042
     Dates: start: 20120124
  4. ACLASTA [Suspect]
     Dosage: UNK
     Route: 042
     Dates: start: 20130125

REACTIONS (1)
  - Nasal cavity cancer [Unknown]
